FAERS Safety Report 7584387-7 (Version None)
Quarter: 2011Q2

REPORT INFORMATION
  Report Type: 
  Country: None (occurrence: None)
  Receive Date: 20110630
  Receipt Date: 20110622
  Transmission Date: 20111010
  Serious: Yes (Other)
  Sender: FDA-Public Use
  Company Number: GB-PFIZER INC-2011137988

PATIENT
  Age: 10 Year
  Sex: Female

DRUGS (8)
  1. DIHYDROCODEINE [Concomitant]
     Dosage: 30 MG, 4X/DAY
     Dates: start: 20110223
  2. PIPERACILLIN [Concomitant]
     Dosage: 3.2 MG, 4X/DAY
     Route: 042
     Dates: start: 20110223
  3. CYTARABINE [Suspect]
     Indication: ACUTE MYELOID LEUKAEMIA
     Dosage: 2400 MG, 2X/DAY
     Route: 042
     Dates: start: 20110215
  4. TAZOBACTAM [Concomitant]
     Dosage: 3.2 MG, 4X/DAY
     Route: 042
     Dates: start: 20110223
  5. ETOPOSIDE [Suspect]
     Indication: ACUTE MYELOID LEUKAEMIA
     Dosage: 600 MG, 1X/DAY
     Route: 042
     Dates: start: 20110215
  6. GEMTUZUMAB OZOGAMICIN [Suspect]
     Indication: ACUTE MYELOID LEUKAEMIA
     Dosage: 3 MG, 1X/DAY
     Route: 042
     Dates: start: 20110215
  7. DAUNORUBICIN HYDROCHLORIDE [Suspect]
     Indication: ACUTE MYELOID LEUKAEMIA
     Dosage: 180 MG, 3X/DAY, DAY 1, 3 AND 5
     Route: 042
     Dates: start: 20110215
  8. ONDANSETRON [Concomitant]
     Dosage: 8 MG, 3X/DAY
     Route: 042
     Dates: start: 20110219

REACTIONS (1)
  - APPENDICITIS [None]
